FAERS Safety Report 9639868 (Version 1)
Quarter: 2013Q4

REPORT INFORMATION
  Report Type: Spontaneous
  Country: US (occurrence: None)
  Receive Date: 20131021
  Receipt Date: 20131021
  Transmission Date: 20140711
  Serious: No
  Sender: FDA-Public Use
  Company Number: None

PATIENT
  Age: 72 Year
  Sex: Female
  Weight: 94.35 kg

DRUGS (1)
  1. ALBUTEROL SULFATE [Suspect]
     Indication: CHRONIC OBSTRUCTIVE PULMONARY DISEASE
     Dosage: 25X3ML VIALS, FOUR TIMES DAILY, INHALATION
     Route: 055
     Dates: start: 20130926, end: 20131019

REACTIONS (4)
  - Cough [None]
  - Dyspnoea [None]
  - Epistaxis [None]
  - Bacterial infection [None]
